FAERS Safety Report 25416034 (Version 8)
Quarter: 2025Q4

REPORT INFORMATION
  Report Type: Spontaneous
  Country: AR (occurrence: AR)
  Receive Date: 20250610
  Receipt Date: 20251215
  Transmission Date: 20260117
  Serious: Yes (Life-Threatening, Other)
  Sender: SANDOZ
  Company Number: AR-002147023-NVSC2025AR019714

PATIENT
  Age: 59 Year
  Sex: Female

DRUGS (14)
  1. FULVESTRANT [Suspect]
     Active Substance: FULVESTRANT
     Indication: Breast cancer metastatic
     Dosage: UNK, Q4W (EVERY 28 DAYS)
     Route: 065
  2. FULVESTRANT [Suspect]
     Active Substance: FULVESTRANT
     Dosage: UNK
     Route: 065
     Dates: start: 20250402, end: 20250530
  3. KISQALI [Suspect]
     Active Substance: RIBOCICLIB SUCCINATE
     Dosage: 200 MG
     Route: 065
  4. KISQALI [Suspect]
     Active Substance: RIBOCICLIB SUCCINATE
     Dosage: 3 DOSAGE FORM, QD (3 DAILY PILLS FOR 21 DAYS)
     Route: 065
     Dates: start: 20250402
  5. KISQALI [Suspect]
     Active Substance: RIBOCICLIB SUCCINATE
     Dosage: 600 MG, QD IN THE MORNING
     Route: 048
  6. KISQALI [Suspect]
     Active Substance: RIBOCICLIB SUCCINATE
     Indication: Breast cancer metastatic
     Dosage: 600 MG, QD
     Route: 048
     Dates: start: 20241104
  7. KISQALI [Suspect]
     Active Substance: RIBOCICLIB SUCCINATE
     Dosage: UNK
     Route: 065
     Dates: start: 202412
  8. DIOSMIN\HESPERIDIN [Suspect]
     Active Substance: DIOSMIN\HESPERIDIN
     Indication: Product used for unknown indication
     Dosage: UNK
     Route: 065
     Dates: end: 20250523
  9. ZOLEDRONIC ACID [Suspect]
     Active Substance: ZOLEDRONIC ACID
     Indication: Product used for unknown indication
     Dosage: UNK
     Route: 065
  10. FOLIC ACID [Concomitant]
     Active Substance: FOLIC ACID
     Indication: Product used for unknown indication
     Dosage: 10 MG, QD (FOR 60 DAYS)
     Route: 048
     Dates: start: 20250408
  11. VITAMIN B1 [Concomitant]
     Active Substance: THIAMINE HYDROCHLORIDE
     Indication: Product used for unknown indication
     Dosage: UNK, QOD, 5 UNK
     Route: 065
  12. VITAMIN B12 [Concomitant]
     Active Substance: CYANOCOBALAMIN
     Indication: Product used for unknown indication
     Dosage: UNK, QOD, 5 UNK
     Route: 065
  13. VITAMIN B6 [Concomitant]
     Active Substance: PYRIDOXINE HYDROCHLORIDE
     Indication: Product used for unknown indication
     Dosage: UNK, QOD, 5 UNK
     Route: 065
  14. XGEVA [Concomitant]
     Active Substance: DENOSUMAB
     Indication: Product used for unknown indication
     Dosage: 2 DF, Q4W, 2X120 MG INJECTION EACH IN BUTTOCK EVERY 28 DAYS
     Route: 065

REACTIONS (26)
  - White blood cell count abnormal [Unknown]
  - Haematochezia [Recovered/Resolved]
  - Metastasis [Unknown]
  - Metastases to bone [Unknown]
  - Memory impairment [Unknown]
  - Sleep deficit [Recovered/Resolved]
  - Gait disturbance [Unknown]
  - Psychomotor hyperactivity [Not Recovered/Not Resolved]
  - Mobility decreased [Unknown]
  - Blood pressure abnormal [Unknown]
  - Osteolysis [Unknown]
  - Osteoarthritis [Unknown]
  - Greater trochanteric pain syndrome [Unknown]
  - Joint effusion [Unknown]
  - Foot deformity [Recovered/Resolved]
  - Hyperchlorhydria [Recovered/Resolved]
  - Haemorrhoids [Recovered/Resolved]
  - Peripheral swelling [Recovered/Resolved]
  - Right atrial enlargement [Unknown]
  - Osteopenia [Unknown]
  - Haemoglobin abnormal [Unknown]
  - Red blood cell count abnormal [Unknown]
  - Haematocrit abnormal [Unknown]
  - Abdominal pain upper [Recovered/Resolved]
  - Pain [Recovering/Resolving]
  - Pain in extremity [Recovered/Resolved]

NARRATIVE: CASE EVENT DATE: 20241108
